FAERS Safety Report 9032382 (Version 1)
Quarter: 2013Q1

REPORT INFORMATION
  Report Type: Spontaneous
  Country: BR (occurrence: BR)
  Receive Date: 20130125
  Receipt Date: 20130125
  Transmission Date: 20140127
  Serious: Yes (Other)
  Sender: FDA-Public Use
  Company Number: BR-GENZYME-CERZ-1002788

PATIENT
  Age: 14 Year
  Sex: Male

DRUGS (3)
  1. CEREZYME [Suspect]
     Indication: GAUCHER^S DISEASE
     Dosage: UNK
     Route: 042
  2. TALIGLUCERASE ALFA [Concomitant]
     Indication: DISEASE PROGRESSION
     Dosage: UNK
     Route: 065
  3. ALFAVELAGLUCERASE [Concomitant]
     Indication: DISEASE PROGRESSION
     Dosage: UNK
     Route: 065

REACTIONS (1)
  - Disease progression [Not Recovered/Not Resolved]
